FAERS Safety Report 15532642 (Version 1)
Quarter: 2018Q4

REPORT INFORMATION
  Report Type: Spontaneous
  Country: CZ (occurrence: CZ)
  Receive Date: 20181019
  Receipt Date: 20181019
  Transmission Date: 20190205
  Serious: Yes (Death, Life-Threatening, Hospitalization, Other)
  Sender: FDA-Public Use
  Company Number: CZ-MACLEODS PHARMACEUTICALS US LTD-MAC2017006214

PATIENT

DRUGS (1)
  1. METFORMIN HYDROCHLORIDE. [Suspect]
     Active Substance: METFORMIN HYDROCHLORIDE
     Indication: TYPE 2 DIABETES MELLITUS
     Dosage: UNK
     Route: 065

REACTIONS (25)
  - Tachypnoea [Recovering/Resolving]
  - Dehydration [Recovering/Resolving]
  - Disorientation [Recovering/Resolving]
  - Septic shock [Fatal]
  - Coma [Unknown]
  - Cardiovascular disorder [Unknown]
  - Respiratory failure [Unknown]
  - Thrombocytopenia [Unknown]
  - Anuria [Unknown]
  - Muscular weakness [Unknown]
  - Vasoplegia syndrome [Unknown]
  - Acute kidney injury [Unknown]
  - Metabolic acidosis [Recovering/Resolving]
  - Hypotension [Recovering/Resolving]
  - Somnolence [Recovering/Resolving]
  - Multiple organ dysfunction syndrome [Fatal]
  - Systemic infection [Recovering/Resolving]
  - Deep vein thrombosis [Unknown]
  - Coagulopathy [Unknown]
  - Gastrointestinal disorder [Unknown]
  - Dyspnoea [Recovering/Resolving]
  - Tachycardia [Recovering/Resolving]
  - Hyperlactacidaemia [Recovering/Resolving]
  - Encephalopathy [Unknown]
  - Liver injury [Unknown]
